FAERS Safety Report 13674887 (Version 2)
Quarter: 2017Q2

REPORT INFORMATION
  Report Type: Report from Study
  Country: US (occurrence: US)
  Receive Date: 20170621
  Receipt Date: 20170623
  Transmission Date: 20170830
  Serious: Yes (Hospitalization)
  Sender: FDA-Public Use
  Company Number: PHHO2017US009298

PATIENT

DRUGS (3)
  1. INC424A [Suspect]
     Active Substance: RUXOLITINIB
     Indication: B PRECURSOR TYPE ACUTE LEUKAEMIA
     Dosage: 20 MG, BID
     Route: 048
     Dates: start: 20170515
  2. MERCAPTOPURINE. [Suspect]
     Active Substance: MERCAPTOPURINE
     Indication: B PRECURSOR TYPE ACUTE LEUKAEMIA
     Dosage: 50 MG, QD (NIGHTLY)
     Route: 048
     Dates: start: 20170515, end: 20170607
  3. METHOTREXATE. [Suspect]
     Active Substance: METHOTREXATE
     Indication: B PRECURSOR TYPE ACUTE LEUKAEMIA
     Dosage: 9040 MG, ONCE/SINGLE
     Route: 042
     Dates: start: 20170515

REACTIONS (4)
  - Proctalgia [Recovered/Resolved]
  - Stomatitis [Not Recovered/Not Resolved]
  - Pyrexia [Recovered/Resolved]
  - Anal inflammation [Recovered/Resolved]

NARRATIVE: CASE EVENT DATE: 20170525
